FAERS Safety Report 9016502 (Version 2)
Quarter: 2013Q1

REPORT INFORMATION
  Report Type: Report from Study
  Country: US (occurrence: US)
  Receive Date: 20130116
  Receipt Date: 20130205
  Transmission Date: 20140127
  Serious: Yes (Hospitalization, Other)
  Sender: FDA-Public Use
  Company Number: US-ABBOTT-13P-163-1033725-00

PATIENT
  Sex: Male
  Weight: 59.02 kg

DRUGS (3)
  1. HUMIRA PEN [Suspect]
     Indication: RHEUMATOID ARTHRITIS
  2. UNNAMED CHOLESTEROL MEDICATION [Concomitant]
     Indication: BLOOD CHOLESTEROL INCREASED
  3. UNNAMED HEART PILLS [Concomitant]
     Indication: CARDIAC DISORDER

REACTIONS (8)
  - Anaemia [Recovering/Resolving]
  - Cardiac failure congestive [Recovered/Resolved]
  - Pneumonia [Not Recovered/Not Resolved]
  - Coronary artery occlusion [Recovered/Resolved]
  - Cardiac pacemaker insertion [Unknown]
  - Pneumonia staphylococcal [Recovered/Resolved]
  - Cardiac failure congestive [Not Recovered/Not Resolved]
  - Renal failure [Not Recovered/Not Resolved]
